FAERS Safety Report 14132525 (Version 2)
Quarter: 2018Q1

REPORT INFORMATION
  Report Type: Report from Study
  Country: None (occurrence: DE)
  Receive Date: 20171027
  Receipt Date: 20180208
  Transmission Date: 20180508
  Serious: Yes (Life-Threatening, Hospitalization)
  Sender: FDA-Public Use
  Company Number: DE-ABBVIE-17K-062-2144243-00

PATIENT
  Sex: Male

DRUGS (1)
  1. HUMIRA [Suspect]
     Active Substance: ADALIMUMAB
     Indication: RHEUMATIC DISORDER
     Route: 058
     Dates: end: 201511

REACTIONS (3)
  - Pneumonia legionella [Recovered/Resolved]
  - Acute kidney injury [Recovered/Resolved]
  - Oedematous pancreatitis [Recovered/Resolved]

NARRATIVE: CASE EVENT DATE: 20170508
